FAERS Safety Report 6766194-8 (Version None)
Quarter: 2010Q2

REPORT INFORMATION
  Report Type: 
  Country: None (occurrence: None)
  Receive Date: 20100611
  Receipt Date: 20100601
  Transmission Date: 20101027
  Serious: Yes (Life-Threatening, Hospitalization)
  Sender: FDA-Public Use
  Company Number: FI-PFIZER INC-2010068287

PATIENT
  Age: 34 Year
  Sex: Male

DRUGS (4)
  1. SALAZOPYRIN [Suspect]
     Indication: PSORIATIC ARTHROPATHY
     Dosage: 2 G DAILY
     Route: 048
     Dates: start: 20100208, end: 20100430
  2. DITRIM DUPLO [Suspect]
     Indication: PROSTATITIS
     Dosage: UNK
     Route: 048
  3. PRONAXEN [Suspect]
     Indication: PROSTATITIS
     Route: 048
  4. PRONAXEN [Suspect]
     Indication: PAIN

REACTIONS (4)
  - CLOSTRIDIUM DIFFICILE COLITIS [None]
  - DRUG INEFFECTIVE [None]
  - DRUG INTERACTION [None]
  - NEUTROPENIA [None]
